FAERS Safety Report 7488511-6 (Version None)
Quarter: 2011Q2

REPORT INFORMATION
  Report Type: 
  Country: None (occurrence: None)
  Receive Date: 20110518
  Receipt Date: 20110513
  Transmission Date: 20111010
  Serious: No
  Sender: FDA-Public Use
  Company Number: AU-MERCK-1104USA01433

PATIENT
  Age: 82 Year
  Sex: Female

DRUGS (5)
  1. ZOCOR [Suspect]
     Route: 048
     Dates: start: 20070101, end: 20110101
  2. LEVOTHYROXINE SODIUM [Concomitant]
     Route: 065
  3. MICARDIS [Concomitant]
     Route: 065
  4. SINEQUAN [Concomitant]
     Route: 065
  5. ACIMAX [Concomitant]
     Route: 065

REACTIONS (6)
  - DYSPNOEA [None]
  - FATIGUE [None]
  - HIP FRACTURE [None]
  - MUSCULAR WEAKNESS [None]
  - PAIN IN EXTREMITY [None]
  - CONSTIPATION [None]
